FAERS Safety Report 16655715 (Version 1)
Quarter: 2019Q3

REPORT INFORMATION
  Report Type: Spontaneous
  Country: BG (occurrence: BG)
  Receive Date: 20190801
  Receipt Date: 20190801
  Transmission Date: 20191004
  Serious: Yes (Death, Life-Threatening, Hospitalization)
  Sender: FDA-Public Use
  Company Number: PHHY2019BG176532

PATIENT
  Age: 59 Year
  Sex: Male

DRUGS (1)
  1. METHOTREXATE. [Suspect]
     Active Substance: METHOTREXATE
     Indication: PSORIASIS
     Route: 065

REACTIONS (7)
  - Condition aggravated [Unknown]
  - Malaise [Unknown]
  - Bone marrow failure [Unknown]
  - Ocular hyperaemia [Unknown]
  - Mouth ulceration [Unknown]
  - Death [Fatal]
  - Vomiting [Unknown]

NARRATIVE: CASE EVENT DATE: 20190615
